FAERS Safety Report 17015698 (Version 1)
Quarter: 2019Q4

REPORT INFORMATION
  Report Type: Spontaneous
  Country: FR (occurrence: FR)
  Receive Date: 20191111
  Receipt Date: 20191111
  Transmission Date: 20200122
  Serious: Yes (Life-Threatening)
  Sender: FDA-Public Use
  Company Number: FR-EMD SERONO-E2B_90072093

PATIENT
  Age: 70 Year
  Sex: Male
  Weight: 125 kg

DRUGS (7)
  1. EUCREAS [Suspect]
     Active Substance: METFORMIN HYDROCHLORIDE\VILDAGLIPTIN
     Indication: TYPE 2 DIABETES MELLITUS
     Dosage: FORM STRENGTH: 1000 MG/  50 MG
     Route: 048
     Dates: end: 20190925
  2. LASILIX                            /00032601/ [Suspect]
     Active Substance: FUROSEMIDE
     Indication: HYPERTENSION
     Route: 048
     Dates: end: 20190925
  3. ATORVASTATINE                      /01326101/ [Suspect]
     Active Substance: ATORVASTATIN
     Indication: DYSLIPIDAEMIA
     Route: 048
     Dates: end: 20190925
  4. TEMERIT [Suspect]
     Active Substance: NEBIVOLOL
     Indication: HYPERTENSION
     Dosage: THERAPY START DATE: 25 SEP 2019
     Route: 048
  5. PREVISCAN (FLUINDIONE) [Suspect]
     Active Substance: FLUINDIONE
     Indication: CARDIOMYOPATHY
     Route: 048
     Dates: end: 20190925
  6. METFORMIN [Suspect]
     Active Substance: METFORMIN HYDROCHLORIDE
     Indication: TYPE 2 DIABETES MELLITUS
     Route: 048
     Dates: end: 20190925
  7. ADENURIC [Suspect]
     Active Substance: FEBUXOSTAT
     Indication: PRODUCT USED FOR UNKNOWN INDICATION
     Route: 048
     Dates: end: 20190925

REACTIONS (4)
  - Haematoma [Not Recovered/Not Resolved]
  - Blood lactic acid [Recovered/Resolved]
  - Acute kidney injury [Recovering/Resolving]
  - Shock haemorrhagic [Recovered/Resolved]

NARRATIVE: CASE EVENT DATE: 20190924
